FAERS Safety Report 4611011-5 (Version None)
Quarter: 2005Q1

REPORT INFORMATION
  Report Type: 
  Country: None (occurrence: None)
  Receive Date: 20050316
  Receipt Date: 20050316
  Transmission Date: 20050727
  Serious: Yes (Hospitalization)
  Sender: FDA-Public Use
  Company Number: None

PATIENT
  Age: 62 Year
  Sex: Male
  Weight: 74.8 kg

DRUGS (5)
  1. ERTAPENEM [Suspect]
  2. PROPOXYOHENE N [Concomitant]
  3. TERAZOSIN HCL [Concomitant]
  4. NOVOLIN 70/30 [Concomitant]
  5. OMEPRAZOLE [Concomitant]

REACTIONS (1)
  - CONVULSION [None]
